FAERS Safety Report 4895873-2 (Version None)
Quarter: 2006Q1

REPORT INFORMATION
  Report Type: 
  Country: None (occurrence: None)
  Receive Date: 20060125
  Receipt Date: 20031205
  Transmission Date: 20060701
  Serious: Yes (Life-Threatening)
  Sender: FDA-Public Use
  Company Number: FR_031203276

PATIENT
  Age: 79 Year
  Sex: Male

DRUGS (2)
  1. VANCOMYCIN [Suspect]
     Dosage: 1000 MG/DAY IV
     Route: 042
     Dates: start: 20030825, end: 20030910
  2. FUCIDINE CAP [Concomitant]

REACTIONS (7)
  - DRUG HYPERSENSITIVITY [None]
  - GAMMA-GLUTAMYLTRANSFERASE INCREASED [None]
  - HYPERBILIRUBINAEMIA [None]
  - LIVER DISORDER [None]
  - RASH ERYTHEMATOUS [None]
  - RENAL FAILURE [None]
  - TRANSAMINASES INCREASED [None]
